FAERS Safety Report 16726601 (Version 1)
Quarter: 2019Q3

REPORT INFORMATION
  Report Type: Spontaneous
  Country: US (occurrence: US)
  Receive Date: 20190821
  Receipt Date: 20190821
  Transmission Date: 20191005
  Serious: No
  Sender: FDA-Public Use
  Company Number: US-ROMARKLABS-2018-US-000235

PATIENT
  Age: 62 Year
  Sex: Female

DRUGS (2)
  1. ALINIA [Suspect]
     Active Substance: NITAZOXANIDE
     Indication: GASTROINTESTINAL BACTERIAL OVERGROWTH
     Dosage: 1 TABLET TWICE DAILY
     Route: 048
     Dates: start: 201809, end: 201809
  2. VYBERZI [Concomitant]
     Indication: DIARRHOEA
     Route: 048
     Dates: start: 201804, end: 20180924

REACTIONS (1)
  - Abdominal pain upper [Recovered/Resolved]
